FAERS Safety Report 8410907 (Version 2)
Quarter: 2012Q4

REPORT INFORMATION
  Report Type: Spontaneous
  Country: US (occurrence: None)
  Receive Date: 20111227
  Receipt Date: 20120426
  Transmission Date: 20130627
  Serious: Yes (Other)
  Sender: FDA-Public Use
  Company Number: PHEH2011US06400

PATIENT
  Age: 57 Year
  Sex: Female

DRUGS (7)
  1. GILENYA [Suspect]
     Indication: MULTIPLE SCLEROSIS
     Dosage: 0.5 MG, QD, ORAL
     Route: 048
     Dates: start: 20111005
  2. ATARAX [Concomitant]
  3. KLONOPIN (CLONAZEPAM) [Concomitant]
  4. ATENOLOL [Concomitant]
  5. FLUOXETINE [Concomitant]
  6. OXYCODONE [Concomitant]
  7. VITAMIN D (ERGOCALCIFEROL) [Concomitant]

REACTIONS (7)
  - Urticaria [None]
  - Fatigue [None]
  - Blood pressure increased [None]
  - Respiratory disorder [None]
  - Pruritus [None]
  - Dyspnoea [None]
  - Heart rate decreased [None]
